FAERS Safety Report 24107456 (Version 1)
Quarter: 2024Q3

REPORT INFORMATION
  Report Type: Report from Study
  Country: US (occurrence: None)
  Receive Date: 20240718
  Receipt Date: 20240718
  Transmission Date: 20241017
  Serious: Yes (Other)
  Sender: ASTRAZENECA
  Company Number: 2020SE24752

PATIENT
  Age: 61 Year
  Sex: Female

DRUGS (2)
  1. LYNPARZA [Suspect]
     Active Substance: OLAPARIB
     Indication: Ovarian cancer
     Route: 048
     Dates: start: 20190601
  2. LYNPARZA [Suspect]
     Active Substance: OLAPARIB
     Indication: Ovarian cancer
     Route: 048

REACTIONS (11)
  - Lower limb fracture [Unknown]
  - Dysphagia [Unknown]
  - Constipation [Unknown]
  - Faeces discoloured [Unknown]
  - Hypersomnia [Unknown]
  - Obesity [Unknown]
  - Fatigue [Unknown]
  - Vomiting [Unknown]
  - Product use complaint [Unknown]
  - Depression [Unknown]
  - Intentional product misuse [Unknown]

NARRATIVE: CASE EVENT DATE: 20190101
